FAERS Safety Report 13311964 (Version 1)
Quarter: 2017Q1

REPORT INFORMATION
  Report Type: Spontaneous
  Country: US (occurrence: US)
  Receive Date: 20170309
  Receipt Date: 20170309
  Transmission Date: 20170428
  Serious: No
  Sender: FDA-Public Use
  Company Number: US-TEVA-719744ACC

PATIENT
  Age: 77 Year
  Sex: Female
  Weight: 72.11 kg

DRUGS (10)
  1. VITAMIN D3 [Concomitant]
     Active Substance: CHOLECALCIFEROL
  2. LISINOPRIL. [Concomitant]
     Active Substance: LISINOPRIL
  3. ALLERGEN EXTRACTS [Concomitant]
  4. CALCIUM D [Concomitant]
     Active Substance: CALCIUM\VITAMIN D
  5. MUCUS ER MAX [Suspect]
     Active Substance: GUAIFENESIN
     Indication: RESPIRATORY TRACT CONGESTION
     Dosage: 2400 MILLIGRAM DAILY;
     Route: 048
     Dates: start: 20161107, end: 20161107
  6. RANITIDINE. [Concomitant]
     Active Substance: RANITIDINE
  7. COENZYME Q10 [Concomitant]
     Active Substance: UBIDECARENONE
  8. OMEPRAZOLE. [Concomitant]
     Active Substance: OMEPRAZOLE
  9. BABY ASPIRIN [Concomitant]
     Active Substance: ASPIRIN
  10. AZITHROMYCIN ANHYDROUS. [Concomitant]
     Active Substance: AZITHROMYCIN ANHYDROUS
     Dates: start: 20161107

REACTIONS (1)
  - Insomnia [Not Recovered/Not Resolved]

NARRATIVE: CASE EVENT DATE: 20161107
